FAERS Safety Report 17338102 (Version 2)
Quarter: 2020Q1

REPORT INFORMATION
  Report Type: Spontaneous
  Country: IT (occurrence: IT)
  Receive Date: 20200129
  Receipt Date: 20200212
  Transmission Date: 20200409
  Serious: Yes (Other)
  Sender: FDA-Public Use
  Company Number: IT-ACCORD-170690

PATIENT
  Age: 65 Year
  Sex: Female

DRUGS (1)
  1. RAMIPRIL. [Suspect]
     Active Substance: RAMIPRIL
     Indication: HYPERTENSION
     Route: 048
     Dates: end: 20200109

REACTIONS (2)
  - Tongue oedema [Recovering/Resolving]
  - Herbal interaction [Unknown]

NARRATIVE: CASE EVENT DATE: 20200111
